FAERS Safety Report 5355850-4 (Version None)
Quarter: 2007Q2

REPORT INFORMATION
  Report Type: 
  Country: None (occurrence: None)
  Receive Date: 20070530
  Receipt Date: 20061004
  Transmission Date: 20071010
  Serious: Yes (Hospitalization)
  Sender: FDA-Public Use
  Company Number: US200610001133

PATIENT
  Age: 52 Year
  Sex: Female
  Weight: 106.6 kg

DRUGS (4)
  1. ZYPREXA [Suspect]
     Indication: DEPRESSION
     Dates: start: 19960101, end: 20020101
  2. RISPERIDONE [Concomitant]
  3. SERTRALINE [Concomitant]
  4. THIAZIDE DERIVATIVES [Concomitant]

REACTIONS (5)
  - BLOOD CHOLESTEROL ABNORMAL [None]
  - BLOOD TRIGLYCERIDES [None]
  - CHOLELITHIASIS [None]
  - DIABETES MELLITUS [None]
  - METABOLIC DISORDER [None]
